FAERS Safety Report 16798851 (Version 1)
Quarter: 2019Q3

REPORT INFORMATION
  Report Type: Spontaneous
  Country: US (occurrence: US)
  Receive Date: 20190912
  Receipt Date: 20190912
  Transmission Date: 20191005
  Serious: Yes (Death, Hospitalization)
  Sender: FDA-Public Use
  Company Number: US-ACTELION-A-CH2019-195194

PATIENT
  Age: 30 Year
  Sex: Male

DRUGS (3)
  1. DOBUTAMINE [Concomitant]
     Active Substance: DOBUTAMINE HYDROCHLORIDE
  2. NITRIC OXIDE. [Concomitant]
     Active Substance: NITRIC OXIDE
     Route: 055
  3. EPOPROSTENOL SODIUM. [Suspect]
     Active Substance: EPOPROSTENOL SODIUM
     Indication: COR PULMONALE ACUTE
     Route: 042

REACTIONS (5)
  - Pulseless electrical activity [Fatal]
  - Circulatory collapse [Fatal]
  - Cor pulmonale [Unknown]
  - Pulmonary tumour thrombotic microangiopathy [Fatal]
  - Respiratory failure [Fatal]
